FAERS Safety Report 8152065-1 (Version None)
Quarter: 2012Q1

REPORT INFORMATION
  Report Type: 
  Country: None (occurrence: None)
  Receive Date: 20120103
  Receipt Date: 20110928
  Transmission Date: 20120608
  Serious: No
  Sender: FDA-Public Use
  Company Number: AE-2011-001875

PATIENT
  Age: 68 Year
  Sex: Female
  Weight: 68.4932 kg

DRUGS (7)
  1. INCIVEK [Suspect]
     Dosage: 2250 MG (750 MG, 3 IN 1 D)
     Dates: start: 20110928
  2. LYRICA [Concomitant]
  3. RIBAVIRIN [Concomitant]
  4. THYROID MEDICATION (THYROID THERAPY) [Concomitant]
  5. NOVOLOG INSULIN CONTINUOUS PUMP (INSULIN ASPART) [Concomitant]
  6. DIGOXIN [Concomitant]
  7. COUMADIN [Concomitant]

REACTIONS (1)
  - DIARRHOEA [None]
